FAERS Safety Report 7745202-1 (Version None)
Quarter: 2011Q3

REPORT INFORMATION
  Report Type: 
  Country: None (occurrence: None)
  Receive Date: 20110908
  Receipt Date: 20110114
  Transmission Date: 20111222
  Serious: Yes (Other)
  Sender: FDA-Public Use
  Company Number: AUR-APL-2011-00299

PATIENT
  Age: 78 Year
  Sex: Male

DRUGS (6)
  1. ARICEPT [Suspect]
     Indication: DEMENTIA
     Dosage: 5, 10 MG (5 MG, 1 IN 1 D), ORAL
     Route: 048
     Dates: start: 20080101
  2. DETROL [Suspect]
     Indication: PAIN
     Dosage: 4 MG (4 MG, 1 IN 1 D), ORAL
     Route: 048
     Dates: start: 20110111
  3. ECOTRIN (ACETYLSALOICYLIC ACID) [Concomitant]
  4. LISINOPRIL [Suspect]
     Indication: HYPERTENSION
     Dosage: 20 MG (20 MG, 1 IN 1 D)
     Dates: start: 20080101
  5. MECLIZINE HCL [Suspect]
     Indication: DIZZINESS
     Dosage: 25 MG (25 MG, 1 IN 1 D)
     Dates: start: 20080101
  6. LIPITOR [Suspect]
     Indication: BLOOD CHOLESTEROL INCREASED
     Dosage: 20 MG (20 MG, 1 IN 1 D), ORAL
     Route: 048
     Dates: start: 20080101

REACTIONS (2)
  - DRUG INTERACTION [None]
  - HALLUCINATION [None]
